FAERS Safety Report 10889247 (Version 2)
Quarter: 2015Q2

REPORT INFORMATION
  Report Type: Report from Study
  Country: FR (occurrence: FR)
  Receive Date: 20150305
  Receipt Date: 20150408
  Transmission Date: 20150821
  Serious: Yes (Other)
  Sender: FDA-Public Use
  Company Number: FR-MYLANLABS-2015M1006657

PATIENT

DRUGS (5)
  1. METHOTREXATE SODIUM. [Suspect]
     Active Substance: METHOTREXATE SODIUM
     Indication: PSORIASIS
     Dosage: 10 MG, QW
     Route: 058
     Dates: start: 201301
  2. METHOTREXATE SODIUM. [Suspect]
     Active Substance: METHOTREXATE SODIUM
     Indication: PSORIASIS
     Dosage: 10 MG, QW
     Route: 048
     Dates: start: 201307, end: 201401
  3. ETANERCEPT [Suspect]
     Active Substance: ETANERCEPT
     Indication: PSORIASIS
     Dosage: 50 MG, QW
     Dates: start: 20140520
  4. METHOTREXATE SODIUM. [Suspect]
     Active Substance: METHOTREXATE SODIUM
     Dosage: 20 MG, QW
     Route: 048
     Dates: start: 201402
  5. METHOTREXATE SODIUM. [Suspect]
     Active Substance: METHOTREXATE SODIUM
     Dosage: 20 UNK, UNK
     Route: 048
     Dates: start: 201402

REACTIONS (4)
  - Drug ineffective [Unknown]
  - Basal cell carcinoma [Not Recovered/Not Resolved]
  - Neurodermatitis [Unknown]
  - Tinnitus [Unknown]

NARRATIVE: CASE EVENT DATE: 20131118
